FAERS Safety Report 8873679 (Version 2)
Quarter: 2012Q4

REPORT INFORMATION
  Report Type: Report from Study
  Country: DE (occurrence: DE)
  Receive Date: 20121030
  Receipt Date: 20121115
  Transmission Date: 20130627
  Serious: Yes (Hospitalization)
  Sender: FDA-Public Use
  Company Number: DE-VERTEX PHARMACEUTICAL INC.-2012-023592

PATIENT
  Age: 58 Year
  Sex: Male
  Weight: 107 kg

DRUGS (6)
  1. VX-950 (TELAPREVIR) [Suspect]
     Indication: CHRONIC HEPATITIS C
     Dosage: 2250 mg, qd
     Route: 048
     Dates: start: 20120627, end: 20120925
  2. PEGASYS [Suspect]
     Indication: CHRONIC HEPATITIS C
     Dosage: Dosage Form: Unspecified
     Route: 058
     Dates: start: 20120627
  3. COPEGUS [Suspect]
     Indication: CHRONIC HEPATITIS C
     Dosage: Dosage Form: Unspecified
     Route: 048
     Dates: start: 20120627
  4. DOLOPOSTERINE [Concomitant]
     Indication: PROCTALGIA
     Dosage: Dosage Form: Unspecified
     Route: 061
     Dates: start: 20120716
  5. CLAVERSAL [Concomitant]
     Dosage: 4g/60g
  6. ADVANTAN [Concomitant]
     Dosage: 0.1%

REACTIONS (3)
  - Anal fistula [Recovered/Resolved]
  - Eczema [Recovered/Resolved]
  - Proctitis [Recovered/Resolved]
